FAERS Safety Report 6565673-6 (Version None)
Quarter: 2010Q1

REPORT INFORMATION
  Report Type: 
  Country: None (occurrence: None)
  Receive Date: 20100201
  Receipt Date: 20100118
  Transmission Date: 20100710
  Serious: Yes (Hospitalization)
  Sender: FDA-Public Use
  Company Number: FR-ROCHE-602147

PATIENT
  Sex: Male
  Weight: 67 kg

DRUGS (9)
  1. ENFUVIRTIDE [Suspect]
     Indication: HIV INFECTION
     Dosage: FORM: ORAL SOLUTION
     Route: 058
     Dates: start: 20080710
  2. MARAVIROC [Suspect]
     Indication: HIV INFECTION
     Route: 048
     Dates: start: 20080710
  3. BACTRIM DS [Concomitant]
     Route: 048
     Dates: start: 20011203
  4. ZELITREX [Concomitant]
     Route: 048
     Dates: start: 20011203
  5. AZADOSE [Concomitant]
     Route: 048
     Dates: start: 20030331
  6. EPIVIR [Concomitant]
     Route: 048
     Dates: start: 20070118
  7. ISENTRESS [Concomitant]
     Route: 048
     Dates: start: 20080710
  8. ETRAVIRINE [Concomitant]
     Route: 048
     Dates: start: 20080710
  9. JOSAMYCIN [Concomitant]
     Dates: start: 20081114, end: 20081119

REACTIONS (4)
  - BLOOD CREATINE PHOSPHOKINASE INCREASED [None]
  - CYTOLYTIC HEPATITIS [None]
  - HYPOXIA [None]
  - PYREXIA [None]
